FAERS Safety Report 7247825-5 (Version None)
Quarter: 2011Q1

REPORT INFORMATION
  Report Type: 
  Country: None (occurrence: None)
  Receive Date: 20110127
  Receipt Date: 20110124
  Transmission Date: 20110831
  Serious: Yes (Death, Hospitalization, Other)
  Sender: FDA-Public Use
  Company Number: US-B.I. PHARMACEUTICALS,INC./RIDGEFIELD-2011-BP-01547BP

PATIENT
  Age: 80 Year
  Sex: Female

DRUGS (1)
  1. PRADAXA [Suspect]

REACTIONS (5)
  - SWELLING FACE [None]
  - SKIN IRRITATION [None]
  - MYOCARDIAL INFARCTION [None]
  - ERYTHEMA [None]
  - DEATH [None]
